FAERS Safety Report 7928127-8 (Version None)
Quarter: 2011Q4

REPORT INFORMATION
  Report Type: 
  Country: None (occurrence: None)
  Receive Date: 20111118
  Receipt Date: 20111114
  Transmission Date: 20120403
  Serious: Yes (Congenital Anomaly)
  Sender: FDA-Public Use
  Company Number: FR-PFIZER INC-2011270287

PATIENT

DRUGS (1)
  1. FLUCONAZOLE [Suspect]
     Route: 064

REACTIONS (2)
  - MATERNAL EXPOSURE DURING PREGNANCY [None]
  - CONGENITAL ANOMALY [None]
